FAERS Safety Report 10614085 (Version 2)
Quarter: 2015Q1

REPORT INFORMATION
  Report Type: Spontaneous
  Country: US (occurrence: US)
  Receive Date: 20141128
  Receipt Date: 20150202
  Transmission Date: 20150720
  Serious: Yes (Hospitalization, Other)
  Sender: FDA-Public Use
  Company Number: US-JNJFOC-20141115709

PATIENT
  Age: 30 Year
  Sex: Female
  Weight: 58.97 kg

DRUGS (8)
  1. TYLENOL REGULAR STRENGTH [Suspect]
     Active Substance: ACETAMINOPHEN
     Indication: TOOTHACHE
     Dosage: 3-4 DOSES OF 325MG, 2-3 TIMES DAILY (APPROXIMATELY 2000-3000 MG/DAY)
     Route: 048
     Dates: start: 20120316, end: 20120323
  2. GABAPENTIN. [Concomitant]
     Active Substance: GABAPENTIN
     Indication: RESTLESS LEGS SYNDROME
     Route: 048
     Dates: start: 20120304
  3. HYDROCODONE/ APAP [Suspect]
     Active Substance: ACETAMINOPHEN\HYDROCODONE
     Indication: ORAL DISORDER
     Dosage: HYDROCODOEN 7.5 MG-ACETAMINOPHEN 750 MG
     Route: 048
     Dates: start: 20120221, end: 20120313
  4. CLINDAMYCIN HCL [Concomitant]
     Active Substance: CLINDAMYCIN HYDROCHLORIDE
     Indication: TOOTH INFECTION
     Route: 048
     Dates: start: 20120322
  5. TRAMADOL HCL [Concomitant]
     Active Substance: TRAMADOL HYDROCHLORIDE
     Indication: TOOTHACHE
     Route: 048
     Dates: start: 20120322
  6. AMOXICILLIN. [Concomitant]
     Active Substance: AMOXICILLIN
     Indication: TOOTH INFECTION
     Route: 048
     Dates: start: 20120221
  7. TYLENOL PM [Suspect]
     Active Substance: ACETAMINOPHEN\DIPHENHYDRAMINE
     Indication: TOOTHACHE
     Dosage: 3-4 DOSE OF 325 MG, ONCE DAILY (APPROXIMATELY 1000 MG/DAY)
     Route: 048
     Dates: start: 20120316, end: 20120323
  8. SUBOXONE [Concomitant]
     Active Substance: BUPRENORPHINE HYDROCHLORIDE\NALOXONE HYDROCHLORIDE
     Indication: SUBSTANCE ABUSE
     Dosage: DOSE: 8 MG-2 MG
     Route: 065
     Dates: start: 2007, end: 2012

REACTIONS (4)
  - Toxicity to various agents [Recovering/Resolving]
  - Acute kidney injury [Recovering/Resolving]
  - Acute hepatic failure [Recovering/Resolving]
  - Hepatic encephalopathy [Recovering/Resolving]

NARRATIVE: CASE EVENT DATE: 201203
